FAERS Safety Report 20703364 (Version 1)
Quarter: 2022Q2

REPORT INFORMATION
  Report Type: Spontaneous
  Country: GB (occurrence: GB)
  Receive Date: 20220413
  Receipt Date: 20220413
  Transmission Date: 20220721
  Serious: Yes (Other)
  Sender: FDA-Public Use
  Company Number: GB-GALDERMA-GB2022004403

PATIENT

DRUGS (1)
  1. DOXYCYCLINE [Suspect]
     Active Substance: DOXYCYCLINE
     Indication: Product used for unknown indication
     Dosage: 1 DOSAGE FORM
     Route: 065

REACTIONS (6)
  - Palpitations [Recovered/Resolved with Sequelae]
  - Headache [Recovered/Resolved with Sequelae]
  - Hyperhidrosis [Recovered/Resolved with Sequelae]
  - Heart rate increased [Recovered/Resolved with Sequelae]
  - Head discomfort [Recovered/Resolved with Sequelae]
  - Dyspepsia [Recovered/Resolved with Sequelae]
